FAERS Safety Report 5161503-8 (Version None)
Quarter: 2006Q4

REPORT INFORMATION
  Report Type: 
  Country: None (occurrence: None)
  Receive Date: 20061130
  Receipt Date: 20060824
  Transmission Date: 20070319
  Serious: No
  Sender: FDA-Public Use
  Company Number: US-GLAXOSMITHKLINE-A0617995A

PATIENT
  Age: 59 Year
  Sex: Male
  Weight: 90.9 kg

DRUGS (1)
  1. WELLBUTRIN XL [Suspect]
     Indication: DEPRESSION
     Route: 048
     Dates: start: 20060701

REACTIONS (2)
  - ALOPECIA [None]
  - HAIR COLOUR CHANGES [None]
